FAERS Safety Report 8878974 (Version 2)
Quarter: 2012Q4

REPORT INFORMATION
  Report Type: 
  Country: JP (occurrence: JP)
  Receive Date: 20121026
  Receipt Date: 20121105
  Transmission Date: 20130627
  Serious: Yes (Hospitalization, Other)
  Sender: FDA-Public Use
  Company Number: JP-BRISTOL-MYERS SQUIBB COMPANY-17061979

PATIENT
  Age: 33 Year
  Sex: Male

DRUGS (4)
  1. ABILIFY TABS [Suspect]
     Indication: SCHIZOPHRENIA
     Route: 048
  2. OLANZAPINE [Suspect]
     Route: 048
  3. PEROSPIRONE [Suspect]
     Route: 048
  4. BLONANSERIN [Suspect]
     Route: 048

REACTIONS (3)
  - Delusion [Unknown]
  - Suicide attempt [Unknown]
  - Poriomania [Unknown]
